FAERS Safety Report 5173135-6 (Version None)
Quarter: 2006Q4

REPORT INFORMATION
  Report Type: 
  Country: None (occurrence: None)
  Receive Date: 20061207
  Receipt Date: 20061207
  Transmission Date: 20070319
  Serious: Yes (Other)
  Sender: FDA-Public Use
  Company Number: None

PATIENT
  Age: 5 Year
  Sex: Male
  Weight: 18.1439 kg

DRUGS (1)
  1. CONCERTA [Suspect]
     Indication: ATTENTION DEFICIT/HYPERACTIVITY DISORDER
     Dosage: 1 TABLET    1 TIME IN A.M.   PO
     Route: 048
     Dates: start: 19980308, end: 20020510

REACTIONS (4)
  - CONVULSION [None]
  - DYSKINESIA [None]
  - DYSPHEMIA [None]
  - TREMOR [None]
